FAERS Safety Report 6057772-2 (Version None)
Quarter: 2009Q1

REPORT INFORMATION
  Report Type: 
  Country: None (occurrence: None)
  Receive Date: 20090129
  Receipt Date: 20090122
  Transmission Date: 20090719
  Serious: Yes (Other)
  Sender: FDA-Public Use
  Company Number: PHHY2009CL02583

PATIENT
  Age: 61 Year
  Sex: Male

DRUGS (2)
  1. CLOZAPINE [Suspect]
     Indication: SCHIZOPHRENIA
     Dosage: 75 MG/DAY
     Dates: start: 20050101
  2. CLOZAPINE [Suspect]
     Dosage: 25 MG/DAY

REACTIONS (1)
  - COLON CANCER [None]
